FAERS Safety Report 8267394-0 (Version None)
Quarter: 2012Q2

REPORT INFORMATION
  Report Type: 
  Country: None (occurrence: None)
  Receive Date: 20120409
  Receipt Date: 20120328
  Transmission Date: 20120825
  Serious: No
  Sender: FDA-Public Use
  Company Number: PHHY2012BR017179

PATIENT
  Age: 72 Year
  Sex: Female

DRUGS (8)
  1. SIMVASTATIN [Concomitant]
     Indication: BLOOD CHOLESTEROL
     Dosage: 40 MG, DAILY
     Route: 048
  2. ISAFLAVONE [Concomitant]
     Indication: MENOPAUSE
     Dosage: 50 MG, DAILY
     Route: 048
  3. METFORMIN HCL [Concomitant]
     Indication: DIABETES MELLITUS
     Dosage: 800 MG, DAILY
     Route: 048
  4. DIOVAN [Suspect]
     Indication: HYPERTENSION
     Dosage: 80 MG, ONE TABLET DAILY
     Route: 048
     Dates: start: 20090601
  5. HYDROXYCHLOROQUINE SULFATE [Concomitant]
     Dosage: 400 MG, DAILY
     Route: 048
  6. DIOVAN [Suspect]
     Dosage: 160 MG, UNK
  7. DIOVAN [Suspect]
     Dosage: 80 MG, TWO TABLETS DAILY
     Dates: start: 20120210
  8. MELOXICAM [Concomitant]
     Indication: ANTIINFLAMMATORY THERAPY
     Dosage: 7.5 MG, UNK
     Route: 048

REACTIONS (10)
  - CALCINOSIS [None]
  - OSTEOPOROSIS [None]
  - EMOTIONAL DISORDER [None]
  - MUSCULOSKELETAL PAIN [None]
  - ANXIETY [None]
  - ARTHRITIS [None]
  - OSTEOARTHRITIS [None]
  - OEDEMA PERIPHERAL [None]
  - ARTHRALGIA [None]
  - HYPERTENSION [None]
